FAERS Safety Report 16856437 (Version 1)
Quarter: 2019Q3

REPORT INFORMATION
  Report Type: Spontaneous
  Country: GB (occurrence: GB)
  Receive Date: 20190926
  Receipt Date: 20190926
  Transmission Date: 20191005
  Serious: Yes (Disabling, Other)
  Sender: FDA-Public Use
  Company Number: GB-TEVA-2019-GB-1112711

PATIENT
  Age: 70 Year
  Sex: Female
  Weight: 59.87 kg

DRUGS (5)
  1. APIXABAN [Concomitant]
     Active Substance: APIXABAN
     Dosage: 10 MG
  2. BISOPROLOL [Concomitant]
     Active Substance: BISOPROLOL
     Dosage: 2.5 MG
  3. ATORVASTATIN [Suspect]
     Active Substance: ATORVASTATIN
     Indication: BLOOD CHOLESTEROL INCREASED
     Dosage: 20 MG
     Route: 048
     Dates: start: 201511, end: 201603
  4. THYROXINE [Concomitant]
     Active Substance: LEVOTHYROXINE
     Dosage: 75 MCG
  5. RAMIPRIL. [Concomitant]
     Active Substance: RAMIPRIL
     Dosage: 2.5 MG

REACTIONS (3)
  - Muscular weakness [Recovered/Resolved with Sequelae]
  - Fatigue [Recovered/Resolved with Sequelae]
  - Neuralgia [Recovered/Resolved with Sequelae]
